FAERS Safety Report 6364062-7 (Version None)
Quarter: 2009Q3

REPORT INFORMATION
  Report Type: 
  Country: None (occurrence: None)
  Receive Date: 20090919
  Receipt Date: 20090714
  Transmission Date: 20100115
  Serious: No
  Sender: FDA-Public Use
  Company Number: US-ABBOTT-09P-163-0585720-00

PATIENT
  Age: 48 Year
  Sex: Male
  Weight: 221.55 kg

DRUGS (3)
  1. HUMIRA [Suspect]
     Indication: PSORIASIS
     Route: 058
  2. METHOTREXATE [Concomitant]
     Indication: PSORIASIS
     Route: 050
  3. PREDNISONE [Concomitant]
     Indication: PSORIASIS

REACTIONS (1)
  - DRUG INEFFECTIVE [None]
